FAERS Safety Report 18762252 (Version 1)
Quarter: 2021Q1

REPORT INFORMATION
  Report Type: Spontaneous
  Country: US (occurrence: US)
  Receive Date: 20210120
  Receipt Date: 20210120
  Transmission Date: 20210419
  Serious: Yes (Other)
  Sender: FDA-Public Use
  Company Number: US-BAYER-2021-021358

PATIENT
  Age: 71 Year
  Sex: Female
  Weight: 55.78 kg

DRUGS (6)
  1. OPSUMIT [Suspect]
     Active Substance: MACITENTAN
     Indication: PULMONARY ARTERIAL HYPERTENSION
     Dosage: 10 MG, QD
     Route: 048
     Dates: start: 20180118
  2. PARACETAMOL [Concomitant]
     Active Substance: ACETAMINOPHEN
     Dosage: UNK
  3. ADEMPAS [Suspect]
     Active Substance: RIOCIGUAT
     Indication: PRODUCT USED FOR UNKNOWN INDICATION
     Dosage: 1.5 MG
  4. ADEMPAS [Suspect]
     Active Substance: RIOCIGUAT
     Indication: PRODUCT USED FOR UNKNOWN INDICATION
     Dosage: 0.5 MG, TID
     Dates: start: 2017
  5. ADEMPAS [Suspect]
     Active Substance: RIOCIGUAT
     Indication: PRODUCT USED FOR UNKNOWN INDICATION
     Dosage: 1.5 MG, TID
  6. ADEMPAS [Suspect]
     Active Substance: RIOCIGUAT
     Indication: PRODUCT USED FOR UNKNOWN INDICATION
     Dosage: 1 MG, TID
     Dates: start: 2017

REACTIONS (22)
  - Dyspnoea [None]
  - Nasopharyngitis [None]
  - Headache [None]
  - Cough [None]
  - Blood pressure fluctuation [None]
  - Nasal congestion [None]
  - Dizziness [Not Recovered/Not Resolved]
  - Hypotension [Not Recovered/Not Resolved]
  - Ear lobe infection [None]
  - Dyspepsia [None]
  - Dyspnoea exertional [None]
  - Inner ear disorder [None]
  - Asthenia [Not Recovered/Not Resolved]
  - Blood pressure decreased [None]
  - Fatigue [Not Recovered/Not Resolved]
  - Osteoporosis [None]
  - Oropharyngeal pain [Not Recovered/Not Resolved]
  - Rhinorrhoea [None]
  - Gastrooesophageal reflux disease [Not Recovered/Not Resolved]
  - Throat irritation [None]
  - Peripheral swelling [None]
  - Sluggishness [None]

NARRATIVE: CASE EVENT DATE: 201804
